FAERS Safety Report 17398728 (Version 1)
Quarter: 2020Q1

REPORT INFORMATION
  Report Type: Spontaneous
  Country: US (occurrence: US)
  Receive Date: 20200210
  Receipt Date: 20200210
  Transmission Date: 20200409
  Serious: No
  Sender: FDA-Public Use
  Company Number: US-VAYAPHARMA-2019-US-001330

PATIENT
  Age: 58 Year
  Sex: Female
  Weight: 48.99 kg

DRUGS (8)
  1. ASHWAGANDHA [Concomitant]
     Active Substance: HERBALS
  2. CALCIUM [Concomitant]
     Active Substance: CALCIUM
  3. VAYACOG [Suspect]
     Active Substance: DOCONEXENT\ICOSAPENT\PHOSPHATIDYL SERINE
     Indication: LIPID METABOLISM DISORDER
     Dosage: 1 DAILY
     Route: 048
     Dates: start: 20190104, end: 20190120
  4. PLAQUENIL [Concomitant]
     Active Substance: HYDROXYCHLOROQUINE SULFATE
  5. TURMERIC [Concomitant]
     Active Substance: HERBALS\TURMERIC
  6. MEMORY AND FOCUS SUPPLEMENT [Concomitant]
  7. LAMOTRIGINE. [Concomitant]
     Active Substance: LAMOTRIGINE
  8. LEFLUNOMIDE. [Concomitant]
     Active Substance: LEFLUNOMIDE

REACTIONS (2)
  - Constipation [Unknown]
  - Bronchitis [Unknown]

NARRATIVE: CASE EVENT DATE: 20190109
